FAERS Safety Report 21274093 (Version 1)
Quarter: 2022Q3

REPORT INFORMATION
  Report Type: Spontaneous
  Country: US (occurrence: US)
  Receive Date: 20220831
  Receipt Date: 20220831
  Transmission Date: 20221027
  Serious: No
  Sender: FDA-Public Use
  Company Number: US-BAYER-2022A120294

PATIENT
  Sex: Female

DRUGS (2)
  1. STIVARGA [Suspect]
     Active Substance: REGORAFENIB
     Indication: Product used for unknown indication
     Dosage: 28 DAY CYCLE (1 IN 1 D)
  2. LONSURF [Suspect]
     Active Substance: TIPIRACIL HYDROCHLORIDE\TRIFLURIDINE
     Indication: Colon cancer
     Dosage: 60 MG, BID (ON DAYS 1-5 AND 8-12 EVERY 28 DAYS)
     Route: 048
     Dates: start: 20220118

REACTIONS (2)
  - Palmoplantar keratoderma [None]
  - Hyperkeratosis [None]
